FAERS Safety Report 22207923 (Version 3)
Quarter: 2023Q2

REPORT INFORMATION
  Report Type: Report from Study
  Country: US (occurrence: US)
  Receive Date: 20230413
  Receipt Date: 20230628
  Transmission Date: 20230722
  Serious: No
  Sender: FDA-Public Use
  Company Number: US-002147023-NVSC2023US085104

PATIENT
  Age: 62 Year
  Sex: Female
  Weight: 90.72 kg

DRUGS (1)
  1. COSENTYX [Suspect]
     Active Substance: SECUKINUMAB
     Indication: Psoriasis
     Dosage: 300 MG (LIQUID, FREQUENCY: OTHER, HCP GAVE 2 SHOTS AT ONE TIME)
     Route: 058
     Dates: start: 202303

REACTIONS (3)
  - Pruritus [Unknown]
  - Mass [Unknown]
  - Psoriasis [Unknown]

NARRATIVE: CASE EVENT DATE: 20230301
